FAERS Safety Report 10407914 (Version 4)
Quarter: 2015Q1

REPORT INFORMATION
  Report Type: Spontaneous
  Country: US (occurrence: US)
  Receive Date: 20140825
  Receipt Date: 20150327
  Transmission Date: 20150720
  Serious: Yes (Hospitalization, Other)
  Sender: FDA-Public Use
  Company Number: US-ACTELION-A-US2014-101143

PATIENT
  Age: 68 Year
  Sex: Female

DRUGS (2)
  1. OPSUMIT [Suspect]
     Active Substance: MACITENTAN
     Indication: PULMONARY ARTERIAL HYPERTENSION
     Dosage: 10 MG, QD
     Route: 048
     Dates: start: 20140523
  2. RIOCIGUAT [Concomitant]
     Active Substance: RIOCIGUAT
     Dosage: 1.5 MG, TID

REACTIONS (7)
  - Oedema peripheral [Unknown]
  - Weight decreased [Unknown]
  - Oedema [Unknown]
  - Diastolic dysfunction [Unknown]
  - Pulmonary oedema [Unknown]
  - Dyspnoea [Unknown]
  - Hypotension [Unknown]
